FAERS Safety Report 12518455 (Version 1)
Quarter: 2016Q2

REPORT INFORMATION
  Report Type: Spontaneous
  Country: BE (occurrence: BE)
  Receive Date: 20160630
  Receipt Date: 20160630
  Transmission Date: 20160815
  Serious: Yes (Other)
  Sender: FDA-Public Use
  Company Number: BE-ASTRAZENECA-2016SE48017

PATIENT
  Age: 838 Month
  Sex: Male

DRUGS (1)
  1. BYDUREON [Suspect]
     Active Substance: EXENATIDE
     Indication: DIABETES MELLITUS
     Route: 058
     Dates: start: 20150204

REACTIONS (3)
  - Throat cancer [Unknown]
  - Injection site abscess [Recovered/Resolved]
  - Blister [Unknown]

NARRATIVE: CASE EVENT DATE: 201602
